FAERS Safety Report 8766977 (Version 1)
Quarter: 2012Q4

REPORT INFORMATION
  Report Type: 
  Country: US (occurrence: US)
  Receive Date: 20120904
  Receipt Date: 20120904
  Transmission Date: 20130627
  Serious: Yes (Hospitalization, Other)
  Sender: FDA-Public Use
  Company Number: PHHO2012US012653

PATIENT
  Age: 76 None
  Sex: Female
  Weight: 80.7 kg

DRUGS (35)
  1. GILENYA [Suspect]
     Dosage: 0.5 mg, QD
     Route: 048
     Dates: start: 20120307, end: 20120824
  2. REGLAN [Suspect]
     Indication: ABDOMINAL DISCOMFORT
     Dosage: 10 mg, 4 times daily
  3. ACTONEL [Concomitant]
     Dosage: 150 mg, QMO
     Route: 048
  4. RESTASIS [Concomitant]
     Dosage: 1 drp, BID
     Route: 047
  5. ENABLEX [Concomitant]
     Dosage: 15 mg, daily
     Route: 048
  6. LASIX [Concomitant]
     Dosage: 20 mg, PRN
     Route: 048
  7. GLYCOLAX [Concomitant]
     Dosage: 20 mg, daily
     Route: 048
  8. NIFEDIAC CC [Concomitant]
     Dosage: 90 mg, daily
     Route: 048
  9. PRILOSEC [Concomitant]
     Dosage: 20 mg, daily
     Route: 048
  10. THERAGRAN [Concomitant]
     Dosage: 1 tab, daily
     Route: 048
     Dates: start: 20120526
  11. COZAAR [Concomitant]
     Dosage: 50 mg, BID
     Route: 048
  12. CATAPRES [Concomitant]
     Dosage: 0.1 mg, PRN
     Route: 048
  13. LIORESAL [Concomitant]
     Dosage: 20 mg, 5QD
     Route: 048
  14. PAXIL [Concomitant]
     Dosage: 20 mg, every AM
     Route: 048
  15. ZOCOR [Concomitant]
     Dosage: 20 mg, every night
     Route: 048
  16. VITAMIN E [Concomitant]
     Dosage: 200 IU, daily
     Route: 048
  17. VITAMIN D [Concomitant]
     Dosage: 1 DF, daily
     Route: 048
  18. VITAMIN D [Concomitant]
     Dosage: 2000 IU, BID
     Route: 048
  19. VITAMIN B12 [Concomitant]
     Dosage: 500 ug, daily
     Route: 048
  20. ASPIRIN [Concomitant]
     Dosage: 81 mg, daily
     Route: 048
  21. CALTRATE WITH VITAMIN D [Concomitant]
     Dosage: 1 DF, BID
     Route: 048
  22. POTASSIUM CHLORIDE [Concomitant]
     Dosage: 40 MEq, QD
     Route: 048
  23. CLONIDINE [Concomitant]
     Dosage: 0.1 mg, BID
     Route: 048
  24. CLONIDINE [Concomitant]
     Dosage: 0.2 mg, BID
     Route: 048
  25. BACLOFEN [Concomitant]
     Dosage: 20 mg, 5QD
     Route: 048
  26. PAROXETINE [Concomitant]
     Dosage: 20 mg, QAM
     Route: 048
  27. ATORVASTATIN [Concomitant]
     Dosage: 10 mg, daily
     Route: 048
  28. LOSARTAN [Concomitant]
     Dosage: 50 mg, BID
     Route: 048
  29. MULTIVITAMINS [Concomitant]
     Dosage: 1 tab, daily 4pm
     Route: 048
  30. PANTOPRAZOLE [Concomitant]
     Dosage: 40 mg, QAM AC
     Route: 048
  31. TROSPIUM [Concomitant]
     Dosage: 60 mg, QAM AC
     Route: 048
  32. POLYETHYLENE GLYCOL [Concomitant]
     Dosage: 17 g, daily
     Route: 048
  33. LEVETIRACETAM [Concomitant]
     Dosage: 250 mg, BID
     Route: 048
  34. PROVIGIL [Concomitant]
  35. BETASERON [Concomitant]
     Indication: MULTIPLE SCLEROSIS
     Dosage: UNK UKN, UNK
     Dates: start: 2004

REACTIONS (21)
  - Gastric disorder [Unknown]
  - Chest pain [Unknown]
  - Haematoma [Recovered/Resolved]
  - Convulsion [Recovered/Resolved]
  - Memory impairment [Recovered/Resolved]
  - Loss of consciousness [Recovered/Resolved]
  - Tremor [Recovering/Resolving]
  - Fall [Recovered/Resolved]
  - Cataract [Unknown]
  - Dehydration [Recovering/Resolving]
  - Dry eye [Unknown]
  - Pain in extremity [Unknown]
  - Back pain [Unknown]
  - Constipation [Unknown]
  - Lip injury [Unknown]
  - Electrocardiogram T wave abnormal [Unknown]
  - Fatigue [Unknown]
  - Multiple sclerosis [Unknown]
  - Central nervous system lesion [Unknown]
  - Gait disturbance [Unknown]
  - Headache [Unknown]
